FAERS Safety Report 8377413-9 (Version None)
Quarter: 2012Q2

REPORT INFORMATION
  Report Type: 
  Country: None (occurrence: None)
  Receive Date: 20120521
  Receipt Date: 20120514
  Transmission Date: 20120825
  Serious: Yes (Other)
  Sender: FDA-Public Use
  Company Number: 2012MA006165

PATIENT
  Age: 54 Year
  Sex: Female

DRUGS (1)
  1. PERMETHRIN [Suspect]
     Indication: ACARODERMATITIS
     Dosage: ;1X;TOP
     Route: 061
     Dates: start: 20120512, end: 20120512

REACTIONS (2)
  - HYPERSENSITIVITY [None]
  - DRUG ADMINISTRATION ERROR [None]
